FAERS Safety Report 24446561 (Version 1)
Quarter: 2024Q4

REPORT INFORMATION
  Report Type: Report from Study
  Country: NL (occurrence: NL)
  Receive Date: 20241016
  Receipt Date: 20241016
  Transmission Date: 20250115
  Serious: Yes (Other)
  Sender: TEVA
  Company Number: NL-TEVA-VS-3243911

PATIENT
  Weight: 1.685 kg

DRUGS (1)
  1. COPAXONE [Suspect]
     Active Substance: GLATIRAMER ACETATE
     Indication: Relapsing multiple sclerosis
     Dosage: TIME INTERVAL: 0.33333333 WEEKS: DOSAGE: 40 MG/ML 3 TIMES IN 1 WEEK;
     Route: 064

REACTIONS (3)
  - Low birth weight baby [Unknown]
  - Developmental delay [Unknown]
  - Foetal exposure during pregnancy [Unknown]

NARRATIVE: CASE EVENT DATE: 20240808
